FAERS Safety Report 23405284 (Version 1)
Quarter: 2024Q1

REPORT INFORMATION
  Report Type: Spontaneous
  Country: US (occurrence: US)
  Receive Date: 20240116
  Receipt Date: 20240116
  Transmission Date: 20240410
  Serious: Yes (Hospitalization, Other)
  Sender: FDA-Public Use
  Company Number: US-SAMSUNG BIOEPIS-SB-2024-00876

PATIENT
  Age: 52 Year
  Sex: Female

DRUGS (2)
  1. ADALIMUMAB [Suspect]
     Active Substance: ADALIMUMAB\ISOPROPYL ALCOHOL
     Indication: Rheumatoid arthritis
     Dosage: UNKNOWN
     Route: 065
  2. SULFASALAZINE [Suspect]
     Active Substance: SULFASALAZINE
     Indication: Rheumatoid arthritis
     Dosage: TWICE DAILY
     Route: 065

REACTIONS (5)
  - Dermatitis psoriasiform [Unknown]
  - Pulmonary mass [Recovered/Resolved]
  - Hepatic lesion [Unknown]
  - Granuloma [Unknown]
  - Rheumatoid nodule [Recovered/Resolved]
